FAERS Safety Report 8541608-1 (Version None)
Quarter: 2012Q3

REPORT INFORMATION
  Report Type: 
  Country: None (occurrence: None)
  Receive Date: 20120726
  Receipt Date: 20120718
  Transmission Date: 20120928
  Serious: Yes (Other)
  Sender: FDA-Public Use
  Company Number: FR-ROCHE-1067537

PATIENT
  Sex: Male
  Weight: 26 kg

DRUGS (4)
  1. FLUTICASONE PROPIONATE/SALMETEROL [Concomitant]
     Dosage: 500/50 MCG
  2. EBASTINE/PSEUDOEPHEDRINE HYDROCHLORIDE [Concomitant]
  3. XOLAIR [Suspect]
     Indication: ASTHMA
     Route: 058
     Dates: start: 20090324, end: 20120126
  4. SINGULAIR [Concomitant]

REACTIONS (2)
  - EYELID OEDEMA [None]
  - INJECTION SITE OEDEMA [None]
